FAERS Safety Report 11382826 (Version 2)
Quarter: 2015Q3

REPORT INFORMATION
  Report Type: Spontaneous
  Country: JP (occurrence: JP)
  Receive Date: 20150814
  Receipt Date: 20150910
  Transmission Date: 20151125
  Serious: Yes (Other)
  Sender: FDA-Public Use
  Company Number: JP-BAYER-2015-399433

PATIENT
  Age: 68 Year
  Sex: Male

DRUGS (3)
  1. TAKEPRON [Concomitant]
     Active Substance: LANSOPRAZOLE
  2. GASMOTIN [Concomitant]
     Active Substance: MOSAPRIDE CITRATE
     Route: 048
  3. ADALAT [Suspect]
     Active Substance: NIFEDIPINE
     Dosage: UNK
     Route: 048
     Dates: start: 20150803

REACTIONS (4)
  - Chest discomfort [Unknown]
  - Oesophageal stenosis [Unknown]
  - Headache [None]
  - Cough [Unknown]

NARRATIVE: CASE EVENT DATE: 20150804
